FAERS Safety Report 5819024-2 (Version None)
Quarter: 2008Q3

REPORT INFORMATION
  Report Type: 
  Country: None (occurrence: None)
  Receive Date: 20080721
  Receipt Date: 20080721
  Transmission Date: 20090109
  Serious: Yes (Other)
  Sender: FDA-Public Use
  Company Number: None

PATIENT
  Age: 46 Year

DRUGS (1)
  1. IFOSFAMIDE [Suspect]
     Indication: HAEMATOPOIETIC STEM CELL MOBILISATION
     Dates: start: 20080525, end: 20080525

REACTIONS (5)
  - DISORIENTATION [None]
  - IMPULSIVE BEHAVIOUR [None]
  - INCONTINENCE [None]
  - SOMNOLENCE [None]
  - SPEECH DISORDER [None]
